FAERS Safety Report 24846824 (Version 1)
Quarter: 2025Q1

REPORT INFORMATION
  Report Type: Spontaneous
  Country: EG (occurrence: EG)
  Receive Date: 20250115
  Receipt Date: 20250115
  Transmission Date: 20250409
  Serious: Yes (Hospitalization)
  Sender: AMGEN
  Company Number: EG-PFIZER INC-PV202500004243

PATIENT
  Age: 31 Year
  Sex: Female

DRUGS (1)
  1. ENBREL [Suspect]
     Active Substance: ETANERCEPT
     Indication: Rheumatoid arthritis
     Dosage: 1 DF, WEEKLY
     Route: 058
     Dates: start: 20240917

REACTIONS (2)
  - Thyroid disorder [Unknown]
  - Hyperglycaemia [Unknown]
